FAERS Safety Report 11728177 (Version 1)
Quarter: 2015Q4

REPORT INFORMATION
  Report Type: Spontaneous
  Country: US (occurrence: US)
  Receive Date: 20151110
  Receipt Date: 20151110
  Transmission Date: 20160304
  Serious: No
  Sender: FDA-Public Use
  Company Number: US-ELI_LILLY_AND_COMPANY-US201109006504

PATIENT
  Sex: Female

DRUGS (4)
  1. MIRALAX [Concomitant]
     Active Substance: POLYETHYLENE GLYCOL 3350
  2. FORTEO [Suspect]
     Active Substance: TERIPARATIDE
     Indication: OSTEOPOROSIS
     Dosage: 20 UG, QD
     Dates: start: 20110830
  3. METAMUCIL [Concomitant]
     Active Substance: PLANTAGO SEED
  4. FORTEO [Suspect]
     Active Substance: TERIPARATIDE
     Dosage: 20 UG, QD

REACTIONS (6)
  - Injection site haemorrhage [Unknown]
  - Musculoskeletal discomfort [Unknown]
  - Injection site bruising [Unknown]
  - Asthenia [Unknown]
  - Constipation [Unknown]
  - Drug dose omission [Recovered/Resolved]
